FAERS Safety Report 4916628-6 (Version None)
Quarter: 2006Q1

REPORT INFORMATION
  Report Type: 
  Country: None (occurrence: None)
  Receive Date: 20060216
  Receipt Date: 20060216
  Transmission Date: 20060701
  Serious: No
  Sender: FDA-Public Use
  Company Number: None

PATIENT
  Sex: Female
  Weight: 118 kg

DRUGS (1)
  1. PEGASYS [Suspect]
     Dosage: 180 MCG WEEKLY SQ
     Route: 058

REACTIONS (1)
  - NEUTROPENIA [None]
